FAERS Safety Report 4988032-6 (Version None)
Quarter: 2006Q2

REPORT INFORMATION
  Report Type: 
  Country: None (occurrence: None)
  Receive Date: 20060426
  Receipt Date: 20060420
  Transmission Date: 20061013
  Serious: Yes (Hospitalization)
  Sender: FDA-Public Use
  Company Number: L06-GER-01332-01

PATIENT
  Age: 17 Year
  Sex: Female
  Weight: 56 kg

DRUGS (8)
  1. LEVOTHYROXINE SODIUM [Suspect]
     Indication: SUICIDE ATTEMPT
     Dosage: 800 MCG QD
  2. LEVOTHYROXINE SODIUM [Suspect]
     Indication: WEIGHT DECREASED
     Dosage: 800 MCG QD
  3. LEVOTHYROXINE SODIUM [Suspect]
     Indication: SUICIDE ATTEMPT
     Dosage: 100 MCG ONCE
  4. LEVOTHYROXINE SODIUM [Suspect]
     Indication: WEIGHT CONTROL
     Dosage: 100 MCG ONCE
  5. LEVOTHYROXINE SODIUM [Suspect]
     Indication: CONGENITAL HYPOTHYROIDISM
     Dosage: 200 MCG QD
  6. LEVOTHYROXINE SODIUM [Suspect]
     Indication: SUICIDE ATTEMPT
     Dosage: 200 MCG QD
  7. LEVOTHYROXINE SODIUM [Suspect]
     Indication: WEIGHT DECREASED
     Dosage: 200 MCG QD
  8. ALCOHOL [Suspect]
     Indication: SUICIDE ATTEMPT
     Dosage: 1 ONCE

REACTIONS (5)
  - ALCOHOL USE [None]
  - BLOOD PRESSURE INCREASED [None]
  - INTENTIONAL OVERDOSE [None]
  - SUICIDE ATTEMPT [None]
  - THYROXINE FREE INCREASED [None]
